FAERS Safety Report 5635245-6 (Version None)
Quarter: 2008Q1

REPORT INFORMATION
  Report Type: 
  Country: None (occurrence: None)
  Receive Date: 20080222
  Receipt Date: 20080215
  Transmission Date: 20080703
  Serious: Yes (Other)
  Sender: FDA-Public Use
  Company Number: FR-BOEHRINGER INGELHEIM GMBH, GERMANY-2008-FF-00088FF

PATIENT
  Sex: Male
  Weight: 67 kg

DRUGS (8)
  1. SPIRIVA [Suspect]
     Indication: CHRONIC OBSTRUCTIVE PULMONARY DISEASE
     Route: 055
     Dates: start: 20080110
  2. PULMICORT [Concomitant]
     Indication: CHRONIC OBSTRUCTIVE PULMONARY DISEASE
     Dates: start: 20080110
  3. BRICANYL [Concomitant]
     Indication: CHRONIC OBSTRUCTIVE PULMONARY DISEASE
     Dates: start: 20080110
  4. MODOPAR [Concomitant]
     Dosage: 125 AND 62,5
  5. NEURONTIN [Concomitant]
  6. SIMVASTATIN [Concomitant]
  7. INIPOMP [Concomitant]
  8. EFFEXOR [Concomitant]

REACTIONS (1)
  - DERMATITIS BULLOUS [None]
